FAERS Safety Report 22749136 (Version 5)
Quarter: 2023Q4

REPORT INFORMATION
  Report Type: Report from Study
  Country: US (occurrence: US)
  Receive Date: 20230725
  Receipt Date: 20231205
  Transmission Date: 20240110
  Serious: Yes (Hospitalization)
  Sender: FDA-Public Use
  Company Number: US-JNJFOC-20230746691

PATIENT
  Age: 51 Year
  Sex: Female
  Weight: 156.5 kg

DRUGS (28)
  1. TECLISTAMAB [Suspect]
     Active Substance: TECLISTAMAB
     Indication: Plasma cell myeloma
     Route: 058
     Dates: start: 20230607, end: 20230609
  2. TECLISTAMAB [Suspect]
     Active Substance: TECLISTAMAB
     Route: 058
     Dates: start: 20230613, end: 20230714
  3. DARATUMUMAB [Suspect]
     Active Substance: DARATUMUMAB
     Indication: Plasma cell myeloma
     Route: 058
     Dates: start: 20230606, end: 20230714
  4. DICLOFENAC [Concomitant]
     Active Substance: DICLOFENAC
     Indication: Spinal osteoarthritis
     Dosage: 1
     Route: 061
     Dates: start: 20200404
  5. CHOLECALCIFEROL [Concomitant]
     Active Substance: CHOLECALCIFEROL
     Indication: Vitamin D deficiency
     Dosage: 1250
     Route: 048
     Dates: start: 20210806
  6. METOPROLOL SUCCINATE [Concomitant]
     Active Substance: METOPROLOL SUCCINATE
     Indication: Hypertension
     Dosage: 25
     Route: 048
     Dates: start: 20220408
  7. ACYCLOVIR [Concomitant]
     Active Substance: ACYCLOVIR
     Indication: Antiviral prophylaxis
     Dosage: 400
     Route: 048
     Dates: start: 20220412
  8. LOPERAMIDE [Concomitant]
     Active Substance: LOPERAMIDE
     Indication: Diarrhoea
     Dosage: 2
     Route: 048
     Dates: start: 20220412
  9. NAPROXEN [Concomitant]
     Active Substance: NAPROXEN
     Indication: Osteoarthritis
     Dosage: 500
     Route: 048
     Dates: start: 20220412
  10. AMLODIPINE [Concomitant]
     Active Substance: AMLODIPINE BESYLATE
     Indication: Hypertension
     Dosage: 10
     Route: 048
     Dates: start: 20220520
  11. COLESTIPOL [Concomitant]
     Active Substance: COLESTIPOL
     Indication: Obesity
     Dosage: 1
     Route: 048
     Dates: start: 20220801
  12. COLESTIPOL [Concomitant]
     Active Substance: COLESTIPOL
     Indication: Diarrhoea
     Dosage: 2
     Route: 048
     Dates: start: 20230613
  13. ASPIRIN [Concomitant]
     Active Substance: ASPIRIN
     Indication: Cerebrovascular accident prophylaxis
     Dosage: 81
     Route: 048
     Dates: start: 20221030
  14. POTASSIUM CHLORIDE [Concomitant]
     Active Substance: POTASSIUM CHLORIDE
     Indication: Hypokalaemia
     Dosage: 40
     Route: 048
     Dates: start: 20221205
  15. MECLIZINE HYDROCHLORIDE [Concomitant]
     Active Substance: MECLIZINE HYDROCHLORIDE
     Indication: Vertigo
     Dosage: 25
     Route: 048
     Dates: start: 20230210
  16. DULOXETINE [Concomitant]
     Active Substance: DULOXETINE
     Indication: Generalised anxiety disorder
     Dosage: 60
     Route: 048
     Dates: start: 20230417
  17. DULOXETINE [Concomitant]
     Active Substance: DULOXETINE
     Indication: Depression
  18. LOVASTATIN [Concomitant]
     Active Substance: LOVASTATIN
     Indication: Obesity
     Dosage: 10
     Route: 048
     Dates: start: 20230505
  19. SEMAGLUTIDE [Concomitant]
     Active Substance: SEMAGLUTIDE
     Indication: Metabolic syndrome
     Dosage: 7
     Route: 048
     Dates: start: 20230505
  20. SEMAGLUTIDE [Concomitant]
     Active Substance: SEMAGLUTIDE
     Indication: Obesity
  21. IMODIUM [Concomitant]
     Active Substance: LOPERAMIDE HYDROCHLORIDE
     Indication: Diarrhoea
     Dosage: 4
     Route: 048
     Dates: start: 20230613
  22. FLONASE [Concomitant]
     Active Substance: FLUTICASONE PROPIONATE
     Indication: Chronic sinusitis
     Route: 045
     Dates: start: 20230610
  23. GLUCERNA [Concomitant]
     Active Substance: AMINO ACIDS\DEXTROSE\ELECTROLYTES NOS\SOYBEAN OIL\VITAMINS
     Indication: Diabetes mellitus
     Dosage: 8
     Route: 048
     Dates: start: 20230610, end: 20230721
  24. MAGNESIUM OXIDE [Concomitant]
     Active Substance: MAGNESIUM OXIDE
     Indication: Diarrhoea
     Dosage: 133
     Route: 048
     Dates: start: 20230613
  25. K TAB [Concomitant]
     Indication: Hypokalaemia
     Dosage: 40
     Route: 048
     Dates: start: 20230613
  26. POTASSIUM [Concomitant]
     Active Substance: POTASSIUM
     Indication: Diarrhoea
     Dosage: 20
     Route: 042
     Dates: start: 20230620, end: 20230620
  27. CANNABIDIOL [Concomitant]
     Active Substance: CANNABIDIOL
     Indication: Dermatitis
     Route: 061
     Dates: start: 20230707
  28. CYMBALTA [Concomitant]
     Active Substance: DULOXETINE HYDROCHLORIDE
     Indication: Depression
     Dosage: 60
     Route: 048
     Dates: start: 20230417

REACTIONS (1)
  - Dehydration [Recovered/Resolved]

NARRATIVE: CASE EVENT DATE: 20230720
